FAERS Safety Report 23145268 (Version 1)
Quarter: 2023Q4

REPORT INFORMATION
  Report Type: Spontaneous
  Country: DE (occurrence: DE)
  Receive Date: 20231103
  Receipt Date: 20231103
  Transmission Date: 20240109
  Serious: Yes (Hospitalization, Other)
  Sender: FDA-Public Use
  Company Number: DE-ABBVIE-5458222

PATIENT
  Age: 62 Year
  Sex: Female

DRUGS (6)
  1. ADALIMUMAB [Suspect]
     Active Substance: ADALIMUMAB\ISOPROPYL ALCOHOL
     Indication: Crohn^s disease
     Dosage: SOLUTION FOR INJECTION
     Route: 058
     Dates: start: 201908
  2. PREDNISOLONE [Concomitant]
     Active Substance: PREDNISOLONE
     Indication: Crohn^s disease
     Dosage: STOP DATE-2020
     Dates: start: 202002
  3. PREDNISOLONE [Concomitant]
     Active Substance: PREDNISOLONE
     Dates: start: 202004
  4. PREDNISOLONE [Concomitant]
     Active Substance: PREDNISOLONE
     Dates: start: 2020, end: 2020
  5. PREDNISOLONE [Concomitant]
     Active Substance: PREDNISOLONE
     Dates: start: 2019
  6. MESALAMINE [Concomitant]
     Active Substance: MESALAMINE
     Indication: Crohn^s disease
     Dosage: FIRST ADMIN DATE: 2019

REACTIONS (14)
  - Gastrointestinal wall thickening [Unknown]
  - Ileal stenosis [Unknown]
  - Ascites [Unknown]
  - Terminal ileitis [Unknown]
  - Adenocarcinoma of appendix [Unknown]
  - Metastases to lymph nodes [Unknown]
  - Metastases to peritoneum [Unknown]
  - Ileus [Unknown]
  - Abdominal pain [Recovered/Resolved]
  - Abdominal pain upper [Unknown]
  - Radius fracture [Unknown]
  - Osteolysis [Unknown]
  - Gastrointestinal stenosis [Unknown]
  - Gastrointestinal inflammation [Unknown]

NARRATIVE: CASE EVENT DATE: 20190901
